FAERS Safety Report 7995765-6 (Version None)
Quarter: 2011Q4

REPORT INFORMATION
  Report Type: 
  Country: None (occurrence: None)
  Receive Date: 20111220
  Receipt Date: 20111213
  Transmission Date: 20120403
  Serious: Yes (Other)
  Sender: FDA-Public Use
  Company Number: US-UCBSA-8052950

PATIENT
  Age: 28 Year
  Sex: Female

DRUGS (4)
  1. ZERVALX [Concomitant]
     Indication: PREGNANCY
     Dosage: DOSE FREQ.: DAILY
     Route: 048
  2. MULTI-VITAMINS [Concomitant]
     Indication: PREGNANCY
     Dosage: 1 TABLET QD
     Route: 048
     Dates: start: 20081229
  3. CALCIUM SUPPLEMENT [Concomitant]
     Indication: MINERAL SUPPLEMENTATION
     Route: 048
  4. KEPPRA [Suspect]
     Indication: EPILEPSY
     Dosage: DOSE FREQ.: DAILY
     Route: 048
     Dates: start: 20071001

REACTIONS (2)
  - CAESAREAN SECTION [None]
  - PREGNANCY [None]
